FAERS Safety Report 14615794 (Version 1)
Quarter: 2018Q1

REPORT INFORMATION
  Report Type: Spontaneous
  Country: GB (occurrence: GB)
  Receive Date: 20180309
  Receipt Date: 20180309
  Transmission Date: 20180509
  Serious: Yes (Other)
  Sender: FDA-Public Use
  Company Number: GB-CIPLA LTD.-2018GB09139

PATIENT

DRUGS (3)
  1. RISPERIDONE. [Suspect]
     Active Substance: RISPERIDONE
     Indication: PRODUCT USED FOR UNKNOWN INDICATION
     Dosage: 37.5 MG, (GIVEN THE MEDICATION FOR 5-6 WEEKS)
     Route: 065
  2. LOSARTAN. [Interacting]
     Active Substance: LOSARTAN
     Indication: PRODUCT USED FOR UNKNOWN INDICATION
     Dosage: UNK (GIVEN THE MEDICATION FOR 5-6 WEEKS)
     Route: 065
  3. CANDESARTAN. [Interacting]
     Active Substance: CANDESARTAN
     Indication: PRODUCT USED FOR UNKNOWN INDICATION
     Dosage: UNK (GIVEN THE MEDICATION FOR 5-6 WEEKS)
     Route: 065

REACTIONS (4)
  - Intrusive thoughts [Unknown]
  - Psychotic disorder [Unknown]
  - Inhibitory drug interaction [Unknown]
  - Hallucination, auditory [Unknown]
